FAERS Safety Report 7276487-6 (Version None)
Quarter: 2011Q1

REPORT INFORMATION
  Report Type: 
  Country: None (occurrence: None)
  Receive Date: 20110131
  Receipt Date: 20110117
  Transmission Date: 20110831
  Serious: Yes (Hospitalization)
  Sender: FDA-Public Use
  Company Number: DSJ-2011-01092

PATIENT
  Age: 72 Year
  Sex: Female

DRUGS (4)
  1. DICLOFENAC [Concomitant]
  2. CHOLESTYRAMINE [Concomitant]
  3. BENICAR [Suspect]
     Indication: HYPERTENSION
     Dosage: 20 MG (20MG, 1 IN 1 D), PER ORAL; 40MG (40 MG, 1 IN 1 D), PER ORAL; 20MG (20 MG, 1 IN 1 D), PER ORAL
     Route: 048
     Dates: start: 20110115, end: 20110115
  4. BENICAR [Suspect]
     Indication: HYPERTENSION
     Dosage: 20 MG (20MG, 1 IN 1 D), PER ORAL; 40MG (40 MG, 1 IN 1 D), PER ORAL; 20MG (20 MG, 1 IN 1 D), PER ORAL
     Route: 048
     Dates: start: 20101101, end: 20110115

REACTIONS (3)
  - DRUG INEFFECTIVE [None]
  - SURGERY [None]
  - NAUSEA [None]
